FAERS Safety Report 13936097 (Version 1)
Quarter: 2017Q3

REPORT INFORMATION
  Report Type: Spontaneous
  Country: US (occurrence: None)
  Receive Date: 20170905
  Receipt Date: 20170905
  Transmission Date: 20171127
  Serious: No
  Sender: FDA-Public Use
  Company Number: None

PATIENT
  Age: 79 Year
  Sex: Male

DRUGS (26)
  1. NYSTOP [Concomitant]
     Active Substance: NYSTATIN
  2. IBUPROFEN. [Concomitant]
     Active Substance: IBUPROFEN
  3. TAMSULOSIN [Concomitant]
     Active Substance: TAMSULOSIN
  4. ROPINIROLE. [Concomitant]
     Active Substance: ROPINIROLE
  5. NUPLAZID [Suspect]
     Active Substance: PIMAVANSERIN TARTRATE
     Indication: PARKINSON^S DISEASE
     Route: 048
     Dates: start: 20160902
  6. FLEET ENEMA [Concomitant]
     Active Substance: SODIUM PHOSPHATE, DIBASIC\SODIUM PHOSPHATE, MONOBASIC
  7. MIRALAX [Concomitant]
     Active Substance: POLYETHYLENE GLYCOL 3350
  8. POLYETH GLYC POW 3350 [Concomitant]
  9. DOMEBORO [Concomitant]
     Active Substance: ALUMINUM ACETATE
  10. CARB/LEVO ER [Concomitant]
  11. ACETAMIN [Concomitant]
     Active Substance: ACETAMINOPHEN
  12. MIRTAZAPINE. [Concomitant]
     Active Substance: MIRTAZAPINE
  13. FINASTERIDE. [Concomitant]
     Active Substance: FINASTERIDE
  14. ENTACAPONE. [Concomitant]
     Active Substance: ENTACAPONE
  15. DONEPEZIL. [Concomitant]
     Active Substance: DONEPEZIL
  16. PROBIOTIC [Concomitant]
     Active Substance: PROBIOTICS NOS
  17. CEFPODOXIME [Concomitant]
     Active Substance: CEFPODOXIME
  18. BISAC-EVAC [Concomitant]
     Active Substance: BISACODYL
  19. OMEPRAZOLE. [Concomitant]
     Active Substance: OMEPRAZOLE
  20. VITAMIN D3 [Concomitant]
     Active Substance: CHOLECALCIFEROL
  21. FLUORIDE [Concomitant]
     Active Substance: SODIUM FLUORIDE
  22. DIVALPROEX [Concomitant]
     Active Substance: DIVALPROEX SODIUM
  23. DULERA [Concomitant]
     Active Substance: FORMOTEROL FUMARATE DIHYDRATE\MOMETASONE FUROATE
  24. KCL/DSW/NACL [Concomitant]
  25. MILK OF MAGNESUS [Concomitant]
  26. VENTOLIN [Concomitant]
     Active Substance: ALBUTEROL SULFATE

REACTIONS (3)
  - Chromaturia [None]
  - Urine abnormality [None]
  - Cystitis [None]

NARRATIVE: CASE EVENT DATE: 20170831
